FAERS Safety Report 8542098-5 (Version None)
Quarter: 2012Q3

REPORT INFORMATION
  Report Type: 
  Country: None (occurrence: None)
  Receive Date: 20120726
  Receipt Date: 20111020
  Transmission Date: 20120928
  Serious: No
  Sender: FDA-Public Use
  Company Number: US-ASTRAZENECA-2011SE63504

PATIENT
  Age: 53 Year
  Sex: Female
  Weight: 113.4 kg

DRUGS (5)
  1. CYMBALTA [Concomitant]
  2. SEROQUEL XR [Suspect]
     Indication: ANXIETY
     Route: 048
  3. TRAZIDONE [Concomitant]
  4. PAXIL [Concomitant]
  5. SEROQUEL XR [Suspect]
     Indication: DEPRESSION
     Route: 048

REACTIONS (3)
  - INCORRECT DOSE ADMINISTERED [None]
  - OFF LABEL USE [None]
  - ANXIETY [None]
